FAERS Safety Report 17950460 (Version 1)
Quarter: 2020Q2

REPORT INFORMATION
  Report Type: Report from Study
  Country: CR (occurrence: CR)
  Receive Date: 20200626
  Receipt Date: 20200626
  Transmission Date: 20200714
  Serious: Yes (Other)
  Sender: FDA-Public Use
  Company Number: NVSC2020CR150740

PATIENT
  Sex: Female

DRUGS (1)
  1. GILENYA [Suspect]
     Active Substance: FINGOLIMOD HYDROCHLORIDE
     Indication: RELAPSING-REMITTING MULTIPLE SCLEROSIS
     Dosage: 0.5 MG, QD
     Route: 048
     Dates: start: 20170606

REACTIONS (9)
  - Angina pectoris [Unknown]
  - Irritability [Unknown]
  - Tooth injury [Unknown]
  - Peritonitis [Unknown]
  - Wound infection [Unknown]
  - Functional gastrointestinal disorder [Unknown]
  - Grief reaction [Unknown]
  - Appendicitis [Unknown]
  - Anxiety [Unknown]
